FAERS Safety Report 18501505 (Version 1)
Quarter: 2020Q4

REPORT INFORMATION
  Report Type: Spontaneous
  Country: US (occurrence: US)
  Receive Date: 20201112
  Receipt Date: 20201112
  Transmission Date: 20210114
  Serious: No
  Sender: FDA-Public Use
  Company Number: None

PATIENT
  Age: 64 Year
  Sex: Female
  Weight: 68.95 kg

DRUGS (1)
  1. LIDOCAINE 5% PATCH [Suspect]
     Active Substance: LIDOCAINE
     Dosage: ?          OTHER DOSE:5%;?
     Route: 062

REACTIONS (2)
  - Rash [None]
  - Product adhesion issue [None]
